FAERS Safety Report 6393347-3 (Version None)
Quarter: 2009Q4

REPORT INFORMATION
  Report Type: 
  Country: None (occurrence: None)
  Receive Date: 20091008
  Receipt Date: 20090930
  Transmission Date: 20100525
  Serious: No
  Sender: FDA-Public Use
  Company Number: US-JNJFOC-20091000793

PATIENT
  Sex: Female

DRUGS (2)
  1. FENTANYL TRANSDERMAL SYSTEM [Suspect]
     Indication: FIBROMYALGIA
     Route: 062
  2. UNKNOWN MEDICATION [Concomitant]

REACTIONS (2)
  - DRUG ADMINISTERED AT INAPPROPRIATE SITE [None]
  - WRONG TECHNIQUE IN DRUG USAGE PROCESS [None]
